FAERS Safety Report 4667196-8 (Version None)
Quarter: 2005Q2

REPORT INFORMATION
  Report Type: 
  Country: None (occurrence: None)
  Receive Date: 20050520
  Receipt Date: 20040507
  Transmission Date: 20051028
  Serious: Yes (Disabling)
  Sender: FDA-Public Use
  Company Number: US-BRISTOL-MYERS SQUIBB COMPANY-12581757

PATIENT
  Age: 73 Year
  Sex: Male
  Weight: 88 kg

DRUGS (22)
  1. SINEMET [Interacting]
     Indication: PARKINSON'S DISEASE
     Dosage: 1 1/2 TAB QAM,1 1/2 TAB AT LUNCH,1 TAB Q 3:00 PM,1 TAB Q 6:00 PM,AND 1/2 TO 1 TAB Q 9:00 PM
     Route: 048
  2. OXYTROL [Interacting]
     Indication: URINARY INCONTINENCE
     Dosage: 1 PATCH
     Route: 062
     Dates: start: 20040428, end: 20040429
  3. OXYTROL [Interacting]
     Indication: MICTURITION URGENCY
     Dosage: 1 PATCH
     Route: 062
     Dates: start: 20040428, end: 20040429
  4. OXYTROL [Interacting]
     Indication: POLLAKIURIA
     Dosage: 1 PATCH
     Route: 062
     Dates: start: 20040428, end: 20040429
  5. AMANTADINE HCL [Suspect]
     Indication: PARKINSON'S DISEASE
     Route: 048
  6. SELEGILINE HCL [Suspect]
     Indication: PARKINSON'S DISEASE
     Route: 048
  7. MIRAPEX [Suspect]
     Indication: PARKINSON'S DISEASE
     Dosage: 3 TABLETS, DIVIDE; ^0.5 MG, 1/2 TABLET QAM, 1 TABLET^
     Route: 048
  8. DETROL [Suspect]
     Indication: BLADDER DISORDER
     Route: 048
     Dates: start: 20040520, end: 20040521
  9. LORAZEPAM [Concomitant]
     Route: 048
  10. AMBIEN [Concomitant]
     Route: 048
  11. FLORINEF [Concomitant]
  12. PROAMATINE [Concomitant]
  13. SODIUM CHLORIDE [Concomitant]
  14. PRAVACHOL [Concomitant]
     Route: 048
  15. FOLIC ACID [Concomitant]
  16. VITAMIN B-12 [Concomitant]
  17. POTASSIUM CHLORIDE [Concomitant]
  18. VITAMIN E [Concomitant]
  19. MULTI-VITAMINS [Concomitant]
  20. PROSCAR [Concomitant]
     Route: 048
  21. SAW PALMETTO [Concomitant]
     Route: 048
  22. ACETYL SALICYLIC ACID USP BAT [Concomitant]
     Route: 048

REACTIONS (4)
  - DRUG INTERACTION [None]
  - FATIGUE [None]
  - PARKINSONISM [None]
  - SOMNOLENCE [None]
